FAERS Safety Report 10548115 (Version 1)
Quarter: 2014Q4

REPORT INFORMATION
  Report Type: Spontaneous
  Country: US (occurrence: None)
  Receive Date: 20141027
  Receipt Date: 20141027
  Transmission Date: 20150529
  Serious: No
  Sender: FDA-Public Use
  Company Number: None

PATIENT
  Age: 58 Year
  Sex: Male
  Weight: 80.5 kg

DRUGS (2)
  1. RIVAROXABAN [Suspect]
     Active Substance: RIVAROXABAN
     Indication: DEEP VEIN THROMBOSIS
     Dosage: 20 MG EVERY DAY PO
     Route: 048
     Dates: start: 20131021, end: 20131122
  2. RIVAROXABAN [Suspect]
     Active Substance: RIVAROXABAN
     Indication: PULMONARY EMBOLISM
     Dosage: 20 MG EVERY DAY PO
     Route: 048
     Dates: start: 20131021, end: 20131122

REACTIONS (2)
  - Angina pectoris [None]
  - Headache [None]

NARRATIVE: CASE EVENT DATE: 20131108
